FAERS Safety Report 9348391 (Version 4)
Quarter: 2014Q1

REPORT INFORMATION
  Report Type: Spontaneous
  Country: JP (occurrence: JP)
  Receive Date: 20130614
  Receipt Date: 20140310
  Transmission Date: 20141002
  Serious: Yes (Other)
  Sender: FDA-Public Use
  Company Number: JP-BRISTOL-MYERS SQUIBB COMPANY-19004498

PATIENT
  Age: 1 Day
  Sex: Male
  Weight: 3.3 kg

DRUGS (4)
  1. ABILIFY [Suspect]
     Dosage: REDUCED ON 14MY13-27MY13:3MG
     Route: 064
     Dates: start: 20130416, end: 20130527
  2. ABILIFY DISCMELT TABS [Suspect]
     Dosage: 21-MAY-2013 TO 27-MAY-2013?11JUN13-07JAN14:211DAYS
     Route: 064
     Dates: start: 20130521, end: 20140107
  3. RIVOTRIL [Concomitant]
     Dates: end: 201304
  4. AMOBAN [Concomitant]
     Dates: end: 201304

REACTIONS (2)
  - Foetal growth restriction [Unknown]
  - Exposure during breast feeding [Unknown]
